FAERS Safety Report 9096546 (Version 2)
Quarter: 2013Q1

REPORT INFORMATION
  Report Type: Spontaneous
  Country: AR (occurrence: AR)
  Receive Date: 20130211
  Receipt Date: 20130306
  Transmission Date: 20140127
  Serious: Yes (Hospitalization)
  Sender: FDA-Public Use
  Company Number: PHHY2013AR012532

PATIENT
  Sex: Female

DRUGS (3)
  1. ACLASTA [Suspect]
     Indication: OSTEOPOROSIS
     Dosage: UNK
     Route: 042
     Dates: start: 20091114
  2. ACLASTA [Suspect]
     Dosage: UNK
     Route: 042
     Dates: start: 2010
  3. ACLASTA [Suspect]
     Dosage: UNK
     Route: 042
     Dates: start: 2011

REACTIONS (1)
  - Sciatic nerve injury [Recovered/Resolved]
